FAERS Safety Report 16980101 (Version 2)
Quarter: 2019Q4

REPORT INFORMATION
  Report Type: Spontaneous
  Country: US (occurrence: US)
  Receive Date: 20191031
  Receipt Date: 20191220
  Transmission Date: 20200122
  Serious: Yes (Hospitalization)
  Sender: FDA-Public Use
  Company Number: US-ASTRAZENECA-2019SF52995

PATIENT
  Age: 729 Month
  Sex: Female
  Weight: 68 kg

DRUGS (2)
  1. BYDUREON [Suspect]
     Active Substance: EXENATIDE
     Indication: TYPE 2 DIABETES MELLITUS
     Route: 058
     Dates: start: 2018, end: 201909
  2. BACITRACIN. [Concomitant]
     Active Substance: BACITRACIN
     Indication: INJECTION SITE INFECTION

REACTIONS (2)
  - Subcutaneous abscess [Recovered/Resolved]
  - Injection site infection [Unknown]

NARRATIVE: CASE EVENT DATE: 201909
